FAERS Safety Report 17072126 (Version 1)
Quarter: 2019Q4

REPORT INFORMATION
  Report Type: Spontaneous
  Country: CN (occurrence: CN)
  Receive Date: 20191125
  Receipt Date: 20191125
  Transmission Date: 20200122
  Serious: Yes (Other)
  Sender: FDA-Public Use
  Company Number: CN-ASTRAZENECA-2019SF51188

PATIENT
  Age: 9 Year
  Sex: Female
  Weight: 21 kg

DRUGS (2)
  1. BUDESONIDE. [Suspect]
     Active Substance: BUDESONIDE
     Indication: WHEEZING
     Route: 055
     Dates: start: 20190502, end: 20190507
  2. SODIUM CHLORIDE. [Concomitant]
     Active Substance: SODIUM CHLORIDE
     Indication: WHEEZING
     Dates: start: 20190502, end: 20190507

REACTIONS (5)
  - Tachypnoea [Unknown]
  - Chest discomfort [Unknown]
  - Heart rate increased [Unknown]
  - Palpitations [Unknown]
  - Blood pressure decreased [Unknown]

NARRATIVE: CASE EVENT DATE: 20190507
